FAERS Safety Report 8219860-1 (Version None)
Quarter: 2012Q1

REPORT INFORMATION
  Report Type: 
  Country: None (occurrence: None)
  Receive Date: 20120319
  Receipt Date: 20120309
  Transmission Date: 20120608
  Serious: Yes (Hospitalization)
  Sender: FDA-Public Use
  Company Number: PE-ASTRAZENECA-2012SE13066

PATIENT
  Age: 52 Year
  Sex: Female

DRUGS (2)
  1. RANITIDINE [Concomitant]
  2. NEXIUM [Suspect]
     Indication: PROPHYLAXIS AGAINST GASTROINTESTINAL ULCER
     Route: 048
     Dates: start: 20110830, end: 20120224

REACTIONS (8)
  - ABDOMINAL PAIN [None]
  - VOMITING [None]
  - DIARRHOEA [None]
  - BLOOD GLUCOSE INCREASED [None]
  - ADVERSE EVENT [None]
  - DEHYDRATION [None]
  - NAUSEA [None]
  - HYPERTENSION [None]
